FAERS Safety Report 9537902 (Version 2)
Quarter: 2013Q3

REPORT INFORMATION
  Report Type: Spontaneous
  Country: US (occurrence: US)
  Receive Date: 20130919
  Receipt Date: 20130926
  Transmission Date: 20140515
  Serious: Yes (Death, Other)
  Sender: FDA-Public Use
  Company Number: US-BAXTER-2013BAX036286

PATIENT
  Age: 42 Year
  Sex: Male

DRUGS (1)
  1. TISSEEL VH S/D [Suspect]
     Indication: CHOLECYSTECTOMY
     Dates: start: 20130729, end: 20130729

REACTIONS (4)
  - Death [Fatal]
  - Post procedural haemorrhage [Unknown]
  - Cardiomyopathy [Unknown]
  - Ejection fraction abnormal [Unknown]
